FAERS Safety Report 20721415 (Version 1)
Quarter: 2022Q2

REPORT INFORMATION
  Report Type: Spontaneous
  Country: US (occurrence: None)
  Receive Date: 20220416
  Receipt Date: 20220416
  Transmission Date: 20220721
  Serious: Yes (unspecified)
  Sender: FDA-Public Use
  Company Number: None

PATIENT
  Age: 11 Year
  Sex: Male
  Weight: 36.9 kg

DRUGS (3)
  1. METHYLPHENIDATE [Suspect]
     Active Substance: METHYLPHENIDATE
     Indication: Attention deficit hyperactivity disorder
     Dosage: OTHER QUANTITY : 1 TABLET(S);?
     Route: 048
     Dates: start: 20220411, end: 20220416
  2. Generic concerta 54 mg in morning [Concomitant]
  3. Generic clonidine .10 mg at night [Concomitant]

REACTIONS (9)
  - Anger [None]
  - Intentional self-injury [None]
  - Physical assault [None]
  - Anger [None]
  - Fear [None]
  - Emotional disorder [None]
  - Product substitution issue [None]
  - Impaired quality of life [None]
  - Suspected product quality issue [None]

NARRATIVE: CASE EVENT DATE: 20220414
